FAERS Safety Report 7125635-7 (Version None)
Quarter: 2010Q4

REPORT INFORMATION
  Report Type: 
  Country: None (occurrence: None)
  Receive Date: 20101129
  Receipt Date: 20101118
  Transmission Date: 20110411
  Serious: Yes (Other)
  Sender: FDA-Public Use
  Company Number: JP-ASTRAZENECA-2010SE38470

PATIENT
  Age: 66 Year
  Sex: Male

DRUGS (2)
  1. CRESTOR [Suspect]
     Indication: HYPERCHOLESTEROLAEMIA
     Dosage: DOSE UNKNOWN.
     Route: 048
  2. JANUVIA [Suspect]
     Dosage: DOSE UNKNOWN.
     Route: 048

REACTIONS (1)
  - GYNAECOMASTIA [None]
